FAERS Safety Report 9983798 (Version 5)
Quarter: 2015Q4

REPORT INFORMATION
  Report Type: Spontaneous
  Country: US (occurrence: US)
  Receive Date: 20140307
  Receipt Date: 20151124
  Transmission Date: 20160305
  Serious: Yes (Hospitalization, Disabling, Other)
  Sender: FDA-Public Use
  Company Number: US-009507513-1403USA000630

PATIENT
  Sex: Female

DRUGS (2)
  1. FOSAMAX [Suspect]
     Active Substance: ALENDRONATE SODIUM
     Indication: OSTEOPOROSIS PROPHYLAXIS
     Dosage: 70 MG, QW
     Route: 048
     Dates: start: 2000, end: 200801
  2. PRILOSEC [Concomitant]
     Active Substance: OMEPRAZOLE MAGNESIUM
     Indication: PRODUCT USED FOR UNKNOWN INDICATION
     Dosage: UNK
     Route: 048
     Dates: start: 1990

REACTIONS (35)
  - Surgery [Unknown]
  - Femur fracture [Unknown]
  - Femur fracture [Unknown]
  - Depression [Unknown]
  - Kyphosis [Unknown]
  - Spinal osteoarthritis [Unknown]
  - Surgery [Unknown]
  - Scoliosis [Unknown]
  - Dupuytren^s contracture [Unknown]
  - Osteonecrosis [Unknown]
  - Fracture nonunion [Unknown]
  - Hypertension [Unknown]
  - Musculoskeletal pain [Recovering/Resolving]
  - Femur fracture [Unknown]
  - Liver function test abnormal [Unknown]
  - Pain in extremity [Unknown]
  - Impaired healing [Unknown]
  - Hip arthroplasty [Unknown]
  - Spinal fusion surgery [Unknown]
  - Fall [Unknown]
  - Lordosis [Unknown]
  - Osteoporosis [Unknown]
  - Knee arthroplasty [Unknown]
  - Muscle strain [Unknown]
  - Medical device implantation [Unknown]
  - Anxiety [Unknown]
  - Joint dislocation [Unknown]
  - Intramedullary rod insertion [Unknown]
  - Hip arthroplasty [Unknown]
  - Hip surgery [Unknown]
  - Femur fracture [Unknown]
  - Necrosis [Unknown]
  - Liver function test abnormal [Recovered/Resolved]
  - Balance disorder [Unknown]
  - Back pain [Not Recovered/Not Resolved]

NARRATIVE: CASE EVENT DATE: 200303
